FAERS Safety Report 13322090 (Version 1)
Quarter: 2017Q1

REPORT INFORMATION
  Report Type: Spontaneous
  Country: US (occurrence: US)
  Receive Date: 20170309
  Receipt Date: 20170309
  Transmission Date: 20170428
  Serious: Yes (Other)
  Sender: FDA-Public Use
  Company Number: US-PFIZER INC-2017094642

PATIENT
  Sex: Female

DRUGS (1)
  1. XELJANZ [Suspect]
     Active Substance: TOFACITINIB CITRATE
     Dosage: 5 MG, UNK

REACTIONS (12)
  - Abdominal discomfort [Unknown]
  - Musculoskeletal stiffness [Unknown]
  - Weight increased [Unknown]
  - Insomnia [Unknown]
  - Wheezing [Unknown]
  - Rash [Unknown]
  - Arthralgia [Unknown]
  - Respiratory tract infection [Unknown]
  - Pyrexia [Unknown]
  - Dry eye [Unknown]
  - Dyspnoea [Unknown]
  - Tinnitus [Unknown]
